FAERS Safety Report 24369966 (Version 1)
Quarter: 2024Q3

REPORT INFORMATION
  Report Type: Other
  Country: FR (occurrence: FR)
  Receive Date: 20240927
  Receipt Date: 20240927
  Transmission Date: 20241016
  Serious: Yes (Hospitalization)
  Sender: ZYDUS PHARM
  Company Number: None

PATIENT

DRUGS (1)
  1. GABAPENTIN [Suspect]
     Active Substance: GABAPENTIN
     Indication: Neuralgia
     Dosage: 100 MILLIGRAM, TID
     Route: 048
     Dates: start: 20240823, end: 20240826

REACTIONS (2)
  - Leukopenia [Recovered/Resolved]
  - Neutropenia [Recovered/Resolved]

NARRATIVE: CASE EVENT DATE: 20240826
